FAERS Safety Report 14814899 (Version 1)
Quarter: 2018Q2

REPORT INFORMATION
  Report Type: Spontaneous
  Country: US (occurrence: US)
  Receive Date: 20180417
  Receipt Date: 20180417
  Transmission Date: 20180711
  Serious: Yes (Other)
  Sender: FDA-Public Use
  Company Number: None

PATIENT
  Age: 71 Year
  Sex: Male
  Weight: 108 kg

DRUGS (6)
  1. ALKA-SELTZER [Concomitant]
     Active Substance: ANHYDROUS CITRIC ACID\ASPIRIN\SODIUM BICARBONATE
  2. VITAMINS [Concomitant]
     Active Substance: VITAMINS
  3. MORPHINE SULFATE 15 MG ER [Suspect]
     Active Substance: MORPHINE SULFATE
     Indication: PAIN
     Dates: start: 20170607
  4. OXYCONDONE 10 MG [Suspect]
     Active Substance: OXYCODONE
     Indication: PAIN
     Route: 048
     Dates: start: 20170607
  5. AMBIEN [Suspect]
     Active Substance: ZOLPIDEM TARTRATE
  6. SEROQUEL [Suspect]
     Active Substance: QUETIAPINE FUMARATE

REACTIONS (3)
  - Insomnia [None]
  - Drug ineffective [None]
  - Pain [None]

NARRATIVE: CASE EVENT DATE: 20170607
